FAERS Safety Report 6254472-0 (Version None)
Quarter: 2009Q3

REPORT INFORMATION
  Report Type: 
  Country: None (occurrence: None)
  Receive Date: 20090701
  Receipt Date: 20090701
  Transmission Date: 20100115
  Serious: Yes (Other)
  Sender: FDA-Public Use
  Company Number: None

PATIENT
  Age: 66 Year
  Sex: Male
  Weight: 72.5755 kg

DRUGS (2)
  1. NIFEREX [Suspect]
     Indication: ANAEMIA OF CHRONIC DISEASE
     Dosage: 60 MG CAPSULE 2 DAILY PO
     Route: 048
  2. NIFEREX [Suspect]
     Indication: CROHN'S DISEASE
     Dosage: 60 MG CAPSULE 2 DAILY PO
     Route: 048

REACTIONS (2)
  - ANAEMIA [None]
  - CONDITION AGGRAVATED [None]
